FAERS Safety Report 9183208 (Version 1)
Quarter: 2013Q1

REPORT INFORMATION
  Report Type: Spontaneous
  Country: US (occurrence: US)
  Receive Date: 20130322
  Receipt Date: 20130322
  Transmission Date: 20140127
  Serious: No
  Sender: FDA-Public Use
  Company Number: US-BRISTOL-MYERS SQUIBB COMPANY-17037797

PATIENT
  Sex: 0

DRUGS (1)
  1. ERBITUX [Suspect]
     Dosage: 2 DOSES

REACTIONS (2)
  - Oral mucosal erythema [Unknown]
  - Lip dry [Unknown]
